FAERS Safety Report 8887670 (Version 1)
Quarter: 2012Q4

REPORT INFORMATION
  Report Type: Spontaneous
  Country: US (occurrence: None)
  Receive Date: 20121101
  Receipt Date: 20121101
  Transmission Date: 20130627
  Serious: Yes (Other)
  Sender: FDA-Public Use
  Company Number: None

PATIENT
  Age: 60 Year
  Sex: Female
  Weight: 53.07 kg

DRUGS (1)
  1. TRIAMTERENE/HCTZ [Suspect]
     Indication: BLOOD PRESSURE HIGH
     Dosage: 1x a day
     Route: 048
     Dates: start: 20100820, end: 20121002

REACTIONS (1)
  - Blood sodium decreased [None]
